FAERS Safety Report 14076363 (Version 3)
Quarter: 2017Q4

REPORT INFORMATION
  Report Type: Spontaneous
  Country: US (occurrence: US)
  Receive Date: 20171011
  Receipt Date: 20171122
  Transmission Date: 20180321
  Serious: Yes (Other)
  Sender: FDA-Public Use
  Company Number: US-AMGEN-USASP2017150581

PATIENT
  Age: 91 Year
  Sex: Female
  Weight: 56.5 kg

DRUGS (5)
  1. PARSABIV [Suspect]
     Active Substance: ETELCALCETIDE HYDROCHLORIDE
     Dosage: 5 MG, 3 TIMES/WK
     Route: 042
     Dates: start: 20170911, end: 20170922
  2. TUMS ULTRA [Concomitant]
     Active Substance: CALCIUM CARBONATE
     Indication: BLOOD CALCIUM ABNORMAL
     Dosage: UNK UNK, QHS (2 TABLETS)
     Dates: start: 20170922
  3. PARSABIV [Suspect]
     Active Substance: ETELCALCETIDE HYDROCHLORIDE
     Dosage: 10 MG, 3 TIMES/WK
     Route: 042
     Dates: start: 20170922
  4. PARSABIV [Suspect]
     Active Substance: ETELCALCETIDE HYDROCHLORIDE
     Indication: HYPERPARATHYROIDISM SECONDARY
     Dosage: 2.5 MG, 3 TIMES/WK
     Route: 042
     Dates: start: 20170821, end: 20170911
  5. CALCITRIOL. [Concomitant]
     Active Substance: CALCITRIOL
     Indication: BLOOD PARATHYROID HORMONE ABNORMAL
     Dosage: 0.25 MUG, 3 TIMES
     Dates: start: 20171007

REACTIONS (2)
  - Underdose [Unknown]
  - Blood parathyroid hormone increased [Not Recovered/Not Resolved]

NARRATIVE: CASE EVENT DATE: 2017
